FAERS Safety Report 21968980 (Version 1)
Quarter: 2023Q1

REPORT INFORMATION
  Report Type: Spontaneous
  Country: US (occurrence: None)
  Receive Date: 20230207
  Receipt Date: 20230207
  Transmission Date: 20230417
  Serious: Yes (Hospitalization, Disabling)
  Sender: FDA-Public Use
  Company Number: None

PATIENT
  Age: 86 Year
  Sex: Female
  Weight: 75 kg

DRUGS (13)
  1. VELTASSA [Suspect]
     Active Substance: PATIROMER
     Indication: Hyperkalaemia
     Dosage: OTHER FREQUENCY : 4 TIMES WEEK;?
     Route: 048
     Dates: start: 202107
  2. ADVAIR DISKUS 250/50 MCG (YELLOW) 60 [Concomitant]
  3. FLUTICASONE ALLERGY NASAL 50MCG SP [Concomitant]
  4. DHEA POWDER [Concomitant]
  5. OMEPRAZOLE [Concomitant]
     Active Substance: OMEPRAZOLE
  6. COQ-10 100MG TR CAPSULES [Concomitant]
  7. GLUCOS/CHOND COMPLEX DIS TABS 150^S [Concomitant]
  8. HYDROCHLOROTHIAZIDE 12.5MG CAPSULES [Concomitant]
  9. MAG-OXIDE 400MG TABLETS [Concomitant]
  10. TRAMADOL HYDROCHLORIDE [Concomitant]
     Active Substance: TRAMADOL HYDROCHLORIDE
  11. TYLENOL 325MG LIQUID GEL CAPSULE [Concomitant]
  12. VITAMIN B-12 1000MCG CR TABLETS [Concomitant]
  13. VITAMIN C 500MG CHEWABLE TABLETS [Concomitant]

REACTIONS (1)
  - Hospitalisation [None]

NARRATIVE: CASE EVENT DATE: 20230203
